FAERS Safety Report 6312831-1 (Version None)
Quarter: 2009Q3

REPORT INFORMATION
  Report Type: 
  Country: None (occurrence: None)
  Receive Date: 20090818
  Receipt Date: 20090807
  Transmission Date: 20100115
  Serious: Yes (Hospitalization)
  Sender: FDA-Public Use
  Company Number: US-CELGENEUS-163-21880-09080642

PATIENT
  Sex: Male

DRUGS (4)
  1. REVLIMID [Suspect]
     Indication: MULTIPLE MYELOMA
     Route: 048
     Dates: start: 20090805
  2. REVLIMID [Suspect]
     Route: 048
     Dates: start: 20090501, end: 20090729
  3. REVLIMID [Suspect]
     Route: 048
     Dates: start: 20070501, end: 20080301
  4. REVLIMID [Suspect]
     Dosage: 15MG-20MG-25MG
     Route: 048
     Dates: start: 20060801, end: 20070501

REACTIONS (2)
  - PLATELET COUNT DECREASED [None]
  - SPINAL OPERATION [None]
